FAERS Safety Report 4794454-9 (Version None)
Quarter: 2005Q4

REPORT INFORMATION
  Report Type: 
  Country: None (occurrence: None)
  Receive Date: 20051011
  Receipt Date: 20050905
  Transmission Date: 20060501
  Serious: Yes (Death, Hospitalization)
  Sender: FDA-Public Use
  Company Number: AR-ROCHE-416440

PATIENT
  Age: 72 Year
  Sex: Male
  Weight: 55 kg

DRUGS (3)
  1. CAPECITABINE [Suspect]
     Route: 065
     Dates: start: 20050802, end: 20050823
  2. BEVACIZUMAB [Suspect]
     Route: 042
     Dates: start: 20050802
  3. OXALIPLATIN [Suspect]
     Route: 065
     Dates: start: 20050802, end: 20050823

REACTIONS (2)
  - DEHYDRATION [None]
  - GENERAL PHYSICAL HEALTH DETERIORATION [None]
